FAERS Safety Report 12745890 (Version 1)
Quarter: 2016Q3

REPORT INFORMATION
  Report Type: Spontaneous
  Country: MY (occurrence: MY)
  Receive Date: 20160915
  Receipt Date: 20160915
  Transmission Date: 20161109
  Serious: Yes (Other)
  Sender: FDA-Public Use
  Company Number: MY-SUN PHARMACEUTICAL INDUSTRIES LTD-2016R1-124100

PATIENT
  Age: 48 Year
  Sex: Male

DRUGS (1)
  1. HYDROCHLOROTHIAZIDE. [Suspect]
     Active Substance: HYDROCHLOROTHIAZIDE
     Indication: HYPERTENSION
     Dosage: UNK
     Route: 065

REACTIONS (5)
  - Hyponatraemia [Recovered/Resolved]
  - Muscle twitching [Recovered/Resolved]
  - Drug ineffective [Unknown]
  - Dizziness [Recovered/Resolved]
  - Confusional state [Recovered/Resolved]
